FAERS Safety Report 7201783-8 (Version None)
Quarter: 2010Q4

REPORT INFORMATION
  Report Type: 
  Country: None (occurrence: None)
  Receive Date: 20101229
  Receipt Date: 20101223
  Transmission Date: 20110411
  Serious: Yes (Death)
  Sender: FDA-Public Use
  Company Number: DZ-ROCHE-750507

PATIENT
  Sex: Female

DRUGS (1)
  1. AVASTIN [Suspect]
     Indication: BREAST CANCER
     Dosage: FREQUENCY-PER CURE.
     Route: 042
     Dates: start: 20090913, end: 20100826

REACTIONS (1)
  - MALIGNANT NEOPLASM PROGRESSION [None]
